FAERS Safety Report 19912917 (Version 2)
Quarter: 2021Q4

REPORT INFORMATION
  Report Type: Spontaneous
  Country: RU (occurrence: RU)
  Receive Date: 20211004
  Receipt Date: 20211208
  Transmission Date: 20220303
  Serious: Yes (Other)
  Sender: FDA-Public Use
  Company Number: RU-SA-2021SA323184

PATIENT
  Age: 24 Year
  Sex: Male
  Weight: 52 kg

DRUGS (10)
  1. ELOCTA [Suspect]
     Active Substance: EFMOROCTOCOG ALFA
     Indication: Factor VIII deficiency
     Dosage: 3500 IU, BIW
     Route: 042
     Dates: start: 20210622
  2. ELOCTA [Suspect]
     Active Substance: EFMOROCTOCOG ALFA
     Indication: Factor VIII deficiency
     Dosage: 3500 IU, BIW
     Route: 042
     Dates: start: 20210622
  3. ELOCTA [Suspect]
     Active Substance: EFMOROCTOCOG ALFA
     Indication: Prophylaxis
     Dosage: 2500 IU, BID
     Route: 042
     Dates: end: 20210811
  4. ELOCTA [Suspect]
     Active Substance: EFMOROCTOCOG ALFA
     Indication: Prophylaxis
     Dosage: 2500 IU, BID
     Route: 042
     Dates: end: 20210811
  5. ELOCTA [Suspect]
     Active Substance: EFMOROCTOCOG ALFA
     Dosage: 3000 IU, QD
     Route: 042
     Dates: start: 20210811, end: 20210819
  6. ELOCTA [Suspect]
     Active Substance: EFMOROCTOCOG ALFA
     Dosage: 3000 IU, QD
     Route: 042
     Dates: start: 20210811, end: 20210819
  7. ELOCTA [Suspect]
     Active Substance: EFMOROCTOCOG ALFA
     Dosage: 2600 IU
     Route: 042
  8. ELOCTA [Suspect]
     Active Substance: EFMOROCTOCOG ALFA
     Dosage: 2600 IU
     Route: 042
  9. ELOCTA [Suspect]
     Active Substance: EFMOROCTOCOG ALFA
     Dosage: 3000 IU, BID
     Route: 042
     Dates: start: 202109
  10. ELOCTA [Suspect]
     Active Substance: EFMOROCTOCOG ALFA
     Dosage: 3000 IU, BID
     Route: 042
     Dates: start: 202109

REACTIONS (10)
  - Haemophilic arthropathy [Unknown]
  - Hypokinesia [Unknown]
  - Muscle disorder [Unknown]
  - Crepitations [Unknown]
  - Muscular weakness [Unknown]
  - Gait disturbance [Unknown]
  - Coagulation factor VIII level decreased [Unknown]
  - Scoliosis [Unknown]
  - Pelvic deformity [Unknown]
  - Traumatic haemorrhage [Recovered/Resolved]

NARRATIVE: CASE EVENT DATE: 20210811
